FAERS Safety Report 22598120 (Version 2)
Quarter: 2023Q2

REPORT INFORMATION
  Report Type: Spontaneous
  Country: US (occurrence: None)
  Receive Date: 20230614
  Receipt Date: 20230614
  Transmission Date: 20230722
  Serious: No
  Sender: FDA-Public Use
  Company Number: US-MDD US Operations-MDD202210-003531

PATIENT
  Age: 56 Year
  Sex: Male
  Weight: 60.32 kg

DRUGS (8)
  1. APOKYN [Suspect]
     Active Substance: APOMORPHINE HYDROCHLORIDE
     Indication: Parkinson^s disease
     Dates: start: 20220801
  2. APOKYN [Suspect]
     Active Substance: APOMORPHINE HYDROCHLORIDE
     Dosage: 30MG/3ML
     Dates: start: 20220801
  3. SINEMET [Concomitant]
     Active Substance: CARBIDOPA\LEVODOPA
  4. PROPRANOLOL [Concomitant]
     Active Substance: PROPRANOLOL HYDROCHLORIDE
     Dosage: NOT PROVIDED
  5. NEUPRO [Concomitant]
     Active Substance: ROTIGOTINE
     Dosage: NOT PROVIDED
  6. KEPPRA [Concomitant]
     Active Substance: LEVETIRACETAM
  7. GABAPENTIN [Concomitant]
     Active Substance: GABAPENTIN
  8. ARTANE [Concomitant]
     Active Substance: TRIHEXYPHENIDYL HYDROCHLORIDE
     Dosage: NOT PROVIDED

REACTIONS (4)
  - Therapeutic product effect decreased [Unknown]
  - Therapy non-responder [Unknown]
  - Device issue [Unknown]
  - Device breakage [Unknown]

NARRATIVE: CASE EVENT DATE: 20221026
